FAERS Safety Report 6337213-8 (Version None)
Quarter: 2009Q3

REPORT INFORMATION
  Report Type: 
  Country: None (occurrence: None)
  Receive Date: 20090902
  Receipt Date: 20070604
  Transmission Date: 20100115
  Serious: Yes (Other)
  Sender: FDA-Public Use
  Company Number: US-ASTRAZENECA-2006UW25015

PATIENT
  Age: 19509 Day
  Sex: Male
  Weight: 80.3 kg

DRUGS (17)
  1. SEROQUEL [Suspect]
     Indication: SLEEP DISORDER
     Dosage: 50 MG Q 4 HRS, 200 MG QHS
     Route: 048
     Dates: start: 20060217, end: 20070207
  2. SEROQUEL [Suspect]
     Indication: DEPRESSION
     Dosage: 50 MG Q 4 HRS, 200 MG QHS
     Route: 048
     Dates: start: 20060217, end: 20070207
  3. SEROQUEL [Suspect]
     Indication: ANXIETY
     Dosage: 50 MG Q 4 HRS, 200 MG QHS
     Route: 048
     Dates: start: 20060217, end: 20070207
  4. SEROQUEL [Suspect]
     Dosage: 100-600 MG
     Route: 048
     Dates: start: 20060224, end: 20061115
  5. SEROQUEL [Suspect]
     Dosage: 100-600 MG
     Route: 048
     Dates: start: 20060224, end: 20061115
  6. SEROQUEL [Suspect]
     Dosage: 100-600 MG
     Route: 048
     Dates: start: 20060224, end: 20061115
  7. ZOLOFT [Concomitant]
     Dosage: 50 MG, 100 MG Q DAY, 150 QD
     Dates: start: 20020101
  8. ZOLOFT [Concomitant]
     Dates: start: 20060217
  9. REMERON [Concomitant]
     Dosage: 30 MG QHS, 45 MG QHS
     Dates: start: 20051129
  10. REMERON [Concomitant]
     Dates: start: 20060224
  11. AMEYTRIPLINE [Concomitant]
     Dates: start: 20060913
  12. ASPIRIN [Concomitant]
     Dates: start: 20051110
  13. TOPROL-XL [Concomitant]
     Dosage: 100 MG Q DAY, 12.1 MG Q DAY
     Dates: start: 20051110
  14. PROTONIX [Concomitant]
     Dates: start: 20060217
  15. LUNESTA [Concomitant]
     Dates: start: 20051110, end: 20060217
  16. PERCOCET-5 [Concomitant]
     Dosage: 2.5 MG DAILY, Q 4 HRS, FIVE TIMES A DAY
     Dates: start: 19980101, end: 20060217
  17. OXYCONTIN [Concomitant]
     Indication: PAIN
     Dosage: 80 MG THREE TIMES A DAY, 40 MG THREE TIMES A DAY
     Route: 048
     Dates: start: 19980101

REACTIONS (5)
  - DIABETES MELLITUS [None]
  - HEART RATE IRREGULAR [None]
  - MYOCARDIAL INFARCTION [None]
  - NEUROLEPTIC MALIGNANT SYNDROME [None]
  - TARDIVE DYSKINESIA [None]
